FAERS Safety Report 8846762 (Version 2)
Quarter: 2013Q1

REPORT INFORMATION
  Report Type: Spontaneous
  Country: US (occurrence: US)
  Receive Date: 20121018
  Receipt Date: 20130121
  Transmission Date: 20140127
  Serious: No
  Sender: FDA-Public Use
  Company Number: US-PFIZER INC-2012252262

PATIENT
  Age: 69 Year
  Sex: Male
  Weight: 79 kg

DRUGS (1)
  1. CAVERJECT [Suspect]
     Indication: PROSTATE CANCER
     Dosage: 20 UG, WEEKLY OR TWICE WEEKLY

REACTIONS (1)
  - Drug ineffective [Unknown]
